FAERS Safety Report 7457931-8 (Version None)
Quarter: 2011Q2

REPORT INFORMATION
  Report Type: 
  Country: None (occurrence: None)
  Receive Date: 20110504
  Receipt Date: 20110502
  Transmission Date: 20111010
  Serious: Yes (Death)
  Sender: FDA-Public Use
  Company Number: JP-PFIZER INC-2011093277

PATIENT
  Age: 72 Year
  Sex: Male

DRUGS (1)
  1. UNASYN [Suspect]
     Dosage: 1.5 G, 1X/DAY
     Route: 042
     Dates: start: 20090901, end: 20090901

REACTIONS (2)
  - SEPSIS [None]
  - INTERSTITIAL LUNG DISEASE [None]
